FAERS Safety Report 8891130 (Version 1)
Quarter: 2012Q4

REPORT INFORMATION
  Report Type: 
  Country: CH (occurrence: CH)
  Receive Date: 20121107
  Receipt Date: 20121107
  Transmission Date: 20130627
  Serious: Yes (Other)
  Sender: FDA-Public Use
  Company Number: CH-ASTRAZENECA-2012SE84166

PATIENT
  Age: 27 Year
  Sex: Male

DRUGS (12)
  1. SEROQUEL [Suspect]
     Route: 048
     Dates: start: 20120117, end: 20120125
  2. SEROQUEL [Suspect]
     Route: 048
     Dates: start: 20120126
  3. SEROQUEL [Suspect]
     Route: 048
  4. SEROQUEL [Suspect]
     Route: 048
  5. TRIMIPRAMINE [Suspect]
     Route: 048
     Dates: start: 20120117, end: 20120127
  6. TRIMIPRAMINE [Suspect]
     Route: 048
     Dates: start: 20120128
  7. METOCLOPRAMIDE HYDROCHLORIDE [Suspect]
     Indication: GASTROINTESTINAL DISORDER
     Route: 048
     Dates: start: 20120125, end: 20120125
  8. METOCLOPRAMIDE HYDROCHLORIDE [Suspect]
     Indication: GASTROINTESTINAL DISORDER
     Route: 048
     Dates: start: 20120521
  9. PSYCHOPAX [Concomitant]
     Route: 048
     Dates: start: 20120117, end: 20120118
  10. PSYCHOPAX [Concomitant]
     Route: 048
     Dates: start: 20120119, end: 20120126
  11. METHADONE [Concomitant]
     Indication: ANALGESIC THERAPY
     Route: 048
  12. METHADONE [Concomitant]
     Indication: RHEUMATIC DISORDER
     Route: 048

REACTIONS (7)
  - Tongue disorder [Unknown]
  - Oropharyngeal spasm [Unknown]
  - Dyspnoea [Unknown]
  - Extrapyramidal disorder [Recovered/Resolved]
  - Dysphagia [Unknown]
  - Abdominal discomfort [Unknown]
  - Nausea [Unknown]
